FAERS Safety Report 5469387-5 (Version None)
Quarter: 2007Q3

REPORT INFORMATION
  Report Type: 
  Country: None (occurrence: None)
  Receive Date: 20070927
  Receipt Date: 20070917
  Transmission Date: 20080115
  Serious: Yes (Disabling, Other)
  Sender: FDA-Public Use
  Company Number: GB-JNJFOC-20070903530

PATIENT
  Age: 40 Year
  Sex: Female

DRUGS (4)
  1. TOPAMAX [Suspect]
     Indication: MIGRAINE
     Route: 048
     Dates: start: 20061006, end: 20070216
  2. CO-CODAMOL [Concomitant]
     Indication: HEADACHE
     Route: 048
  3. CO-CODAMOL [Concomitant]
     Indication: BACK PAIN
     Route: 048
  4. ZOMIG [Concomitant]
     Indication: MIGRAINE
     Route: 048

REACTIONS (4)
  - CHEST DISCOMFORT [None]
  - COUGH [None]
  - RESPIRATORY FAILURE [None]
  - WEIGHT DECREASED [None]
